FAERS Safety Report 24753473 (Version 2)
Quarter: 2025Q1

REPORT INFORMATION
  Report Type: Report from Study
  Country: SE (occurrence: SE)
  Receive Date: 20241219
  Receipt Date: 20250310
  Transmission Date: 20250408
  Serious: Yes (Other)
  Sender: MYLAN
  Company Number: SE-ORIFARM-032417

PATIENT
  Age: 48 Year
  Sex: Male

DRUGS (3)
  1. SERTRALINE [Suspect]
     Active Substance: SERTRALINE HYDROCHLORIDE
     Indication: Depression
     Dosage: 150 MG, QD(150 MG X 1 (SERTRALINE TREATMENT BEFORE SYMPTOM ONSET FOR 3 YEARS AND DISCONTINUED 3 WK)
  2. SERTRALINE [Suspect]
     Active Substance: SERTRALINE HYDROCHLORIDE
  3. SERTRALINE [Suspect]
     Active Substance: SERTRALINE HYDROCHLORIDE

REACTIONS (2)
  - Inborn error of lipid metabolism [Unknown]
  - Myopathy [Unknown]
